FAERS Safety Report 17569903 (Version 1)
Quarter: 2020Q1

REPORT INFORMATION
  Report Type: Spontaneous
  Country: US (occurrence: US)
  Receive Date: 20200316
  Receipt Date: 20200316
  Transmission Date: 20200409
  Serious: No
  Sender: FDA-Public Use
  Company Number: None

PATIENT
  Age: 40 Year
  Sex: Male
  Weight: 79 kg

DRUGS (1)
  1. INFLIXIMAB-ABDA (INFLIXIMAB-ABDA 100MG/VIL INJ, LYPHL) [Suspect]
     Active Substance: INFLIXIMAB-ABDA
     Route: 042
     Dates: start: 20191220, end: 20191220

REACTIONS (4)
  - Dyspnoea [None]
  - Angioedema [None]
  - Chest discomfort [None]
  - Anaphylactic reaction [None]

NARRATIVE: CASE EVENT DATE: 20191220
